FAERS Safety Report 12577511 (Version 1)
Quarter: 2016Q3

REPORT INFORMATION
  Report Type: Spontaneous
  Country: CN (occurrence: CN)
  Receive Date: 20160720
  Receipt Date: 20160720
  Transmission Date: 20161109
  Serious: Yes (Other)
  Sender: FDA-Public Use
  Company Number: ALCN2016CN004871

PATIENT

DRUGS (2)
  1. TEARS NATURALE FORTE [Suspect]
     Active Substance: DEXTRAN 70\GLYCERIN\HYPROMELLOSES
     Indication: LENS EXTRACTION
     Dosage: 1 GTT, QID
     Route: 047
  2. TOBRADEX [Suspect]
     Active Substance: DEXAMETHASONE\TOBRAMYCIN
     Indication: LENS EXTRACTION
     Dosage: 1 GTT, QID
     Route: 047

REACTIONS (1)
  - Xerophthalmia [Unknown]
